FAERS Safety Report 17888121 (Version 1)
Quarter: 2020Q2

REPORT INFORMATION
  Report Type: Spontaneous
  Country: US (occurrence: US)
  Receive Date: 20200612
  Receipt Date: 20200612
  Transmission Date: 20200714
  Serious: Yes (Other)
  Sender: FDA-Public Use
  Company Number: US-PACIRA-202000202

PATIENT

DRUGS (4)
  1. EXPAREL [Suspect]
     Active Substance: BUPIVACAINE
     Indication: POSTOPERATIVE ANALGESIA
     Dosage: 20 ML (266 MG) AT THE END OF THE PROCEDURE
     Route: 032
  2. NSAIDS [Concomitant]
     Active Substance: UNSPECIFIED INGREDIENT
     Indication: PROCEDURAL PAIN
     Dosage: AS NEEDED
     Route: 065
  3. COLCHICINE. [Concomitant]
     Active Substance: COLCHICINE
     Indication: PROCEDURAL PAIN
     Dosage: 0.6 MG BID OR 0.3 MG BID GIVEN PERIPROCEDURAL
     Route: 048
  4. OPIOIDS [Concomitant]
     Active Substance: UNSPECIFIED INGREDIENT
     Indication: PROCEDURAL PAIN
     Dosage: AS NEEDED, UP TO 24 HOURS POST-PROCEDURE
     Route: 065

REACTIONS (8)
  - Off label use [Unknown]
  - Vomiting [Unknown]
  - Pericardial effusion [Unknown]
  - Abdominal discomfort [Unknown]
  - Pericarditis [Unknown]
  - Constipation [Unknown]
  - Pleural effusion [Unknown]
  - Nausea [Unknown]
